FAERS Safety Report 7021687-3 (Version None)
Quarter: 2010Q3

REPORT INFORMATION
  Report Type: 
  Country: None (occurrence: None)
  Receive Date: 20100928
  Receipt Date: 20100913
  Transmission Date: 20110219
  Serious: Yes (Death, Hospitalization)
  Sender: FDA-Public Use
  Company Number: 2010P1001500

PATIENT
  Age: 54 Year
  Sex: Male

DRUGS (4)
  1. CILOSTAZOL [Suspect]
     Indication: ANTIPLATELET THERAPY
     Dosage: 100 MG;BID
     Dates: start: 20080701, end: 20081101
  2. ASPIRIN [Suspect]
     Indication: ANTIPLATELET THERAPY
     Dosage: 100 MG;QD
     Dates: start: 20030101, end: 20081101
  3. CLOPIDOGREL [Suspect]
     Indication: ANTIPLATELET THERAPY
     Dosage: 75 MG;QD
     Dates: start: 20030101, end: 20081101
  4. WARFARIN SODIUM [Suspect]
     Indication: ANTIPLATELET THERAPY
     Dates: start: 20080801, end: 20081101

REACTIONS (9)
  - ANGINA UNSTABLE [None]
  - CORONARY ARTERY OCCLUSION [None]
  - DISSEMINATED INTRAVASCULAR COAGULATION [None]
  - FLANK PAIN [None]
  - HAEMATOCRIT DECREASED [None]
  - METABOLIC ACIDOSIS [None]
  - MULTI-ORGAN FAILURE [None]
  - RENAL HAEMORRHAGE [None]
  - THROMBOSIS IN DEVICE [None]
